FAERS Safety Report 19378290 (Version 2)
Quarter: 2021Q2

REPORT INFORMATION
  Report Type: Report from Study
  Country: CA (occurrence: CA)
  Receive Date: 20210605
  Receipt Date: 20210614
  Transmission Date: 20210717
  Serious: Yes (Hospitalization)
  Sender: FDA-Public Use
  Company Number: CA-TAKEDA-2021TUS035283

PATIENT
  Age: 51 Year
  Sex: Male

DRUGS (4)
  1. SALOFALK [Concomitant]
     Dosage: UNK
     Dates: start: 20041215, end: 20061215
  2. CODEINE [Concomitant]
     Active Substance: CODEINE
     Dosage: 30 MILLIGRAM
     Dates: start: 20170808
  3. VEDOLIZUMAB [Suspect]
     Active Substance: VEDOLIZUMAB
     Indication: COLITIS ULCERATIVE
     Dosage: 300 MILLIGRAM, Q4WEEKS
     Route: 042
     Dates: start: 20181005
  4. SALOFALK [Concomitant]
     Dosage: 1000 MILLIGRAM, BID
     Dates: start: 20180818

REACTIONS (2)
  - Hospitalisation [Unknown]
  - Off label use [Unknown]

NARRATIVE: CASE EVENT DATE: 20181005
